FAERS Safety Report 5207717-X (Version None)
Quarter: 2006Q4

REPORT INFORMATION
  Report Type: 
  Country: None (occurrence: None)
  Receive Date: 20061030
  Receipt Date: 20060823
  Transmission Date: 20070319
  Serious: No
  Sender: FDA-Public Use
  Company Number: 2006CT000707

PATIENT
  Age: 52 Year
  Sex: Female
  Weight: 82.1011 kg

DRUGS (15)
  1. VENTAVIS [Suspect]
     Indication: PULMONARY HYPERTENSION
     Dosage: 2.5 UG; 2 - 3X/DAY; INH
     Route: 055
     Dates: start: 20060706, end: 20060823
  2. ZOFRAN [Suspect]
     Indication: NAUSEA
     Dates: start: 20060701
  3. ZOFRAN [Suspect]
     Indication: VOMITING
     Dates: start: 20060701
  4. METOCLOPRAMIDE [Suspect]
     Indication: NAUSEA
     Dates: start: 20060701
  5. METOCLOPRAMIDE [Suspect]
     Indication: VOMITING
     Dates: start: 20060701
  6. COMPAZINE [Suspect]
     Indication: NAUSEA
     Dates: start: 20060701
  7. COMPAZINE [Suspect]
     Indication: VOMITING
     Dates: start: 20060701
  8. SILDENAFIL CITRATE [Concomitant]
  9. EDECRIN [Concomitant]
  10. XANAX [Concomitant]
  11. DILAUDID [Concomitant]
  12. FENTANYL [Concomitant]
  13. DIGOXIN [Concomitant]
  14. POTASSIUM CHLORIDE [Concomitant]
  15. PREVACID [Concomitant]

REACTIONS (2)
  - FATIGUE [None]
  - NAUSEA [None]
